FAERS Safety Report 13567872 (Version 2)
Quarter: 2017Q4

REPORT INFORMATION
  Report Type: Spontaneous
  Country: GB (occurrence: GB)
  Receive Date: 20170522
  Receipt Date: 20171017
  Transmission Date: 20180320
  Serious: Yes (Other)
  Sender: FDA-Public Use
  Company Number: GB-VIIV HEALTHCARE LIMITED-GB2017074048

PATIENT
  Age: 42 Year
  Sex: Female
  Weight: 74 kg

DRUGS (31)
  1. INTELENCE [Suspect]
     Active Substance: ETRAVIRINE
     Dosage: 1000 MG, QD
     Route: 048
     Dates: end: 20081023
  2. NOVORAPID [Concomitant]
     Active Substance: INSULIN ASPART
     Dosage: DOSAGE FORM: UNSPECIFIED
     Route: 065
  3. INSULIN [Concomitant]
     Active Substance: INSULIN NOS
     Dosage: DOSAGE FORM: UNSPECIFIED
     Route: 065
  4. PREDNISOLONE. [Concomitant]
     Active Substance: PREDNISOLONE
     Route: 065
  5. INSULIN [Concomitant]
     Active Substance: INSULIN NOS
     Indication: GESTATIONAL DIABETES
     Dosage: DOSAGE FORM: UNSPECIFIED
     Route: 065
  6. ZIDOVUDINE. [Suspect]
     Active Substance: ZIDOVUDINE
     Indication: ANTIVIRAL PROPHYLAXIS
     Dosage: DOSAGE FORM: UNSPECIFIED
     Route: 065
  7. ZIDOVUDINE. [Suspect]
     Active Substance: ZIDOVUDINE
     Dosage: DOSAGE FORM: UNSPECIFIED
     Route: 065
  8. APTIVUS [Suspect]
     Active Substance: TIPRANAVIR
     Indication: HIV INFECTION
     Dosage: 500 MG, BID
     Route: 048
     Dates: start: 20060905, end: 20081023
  9. NORVIR [Suspect]
     Active Substance: RITONAVIR
     Indication: HIV INFECTION
     Dosage: 400 MG, BID
     Route: 048
     Dates: start: 20081023
  10. NORVIR [Suspect]
     Active Substance: RITONAVIR
     Dosage: 100 MG, BID
     Route: 048
     Dates: start: 20081023
  11. TIPRANAVIR [Concomitant]
     Active Substance: TIPRANAVIR
     Indication: PRODUCT USED FOR UNKNOWN INDICATION
     Dosage: DOSAGE FORM: UNSPECIFIED
     Route: 065
     Dates: start: 20081023
  12. ENFUVIRTIDE. [Concomitant]
     Active Substance: ENFUVIRTIDE
     Indication: PRODUCT USED FOR UNKNOWN INDICATION
     Dosage: DOSAGE FORM: UNSPECIFIED
     Route: 065
  13. ZIDOVUDINE. [Suspect]
     Active Substance: ZIDOVUDINE
     Dosage: DOSAGE FORM: UNSPECIFIED
     Route: 065
  14. OXYGEN. [Concomitant]
     Active Substance: OXYGEN
     Indication: PRODUCT USED FOR UNKNOWN INDICATION
     Dosage: DOSAGE FORM: UNSPECIFIED
     Route: 065
  15. INTELENCE [Suspect]
     Active Substance: ETRAVIRINE
     Indication: HIV INFECTION
     Dosage: 500 MG, BID
     Route: 048
     Dates: start: 20081023
  16. NOVORAPID [Concomitant]
     Active Substance: INSULIN ASPART
     Dosage: DOSAGE FORM: UNSPECIFIED
     Route: 065
  17. NITROUS OXIDE. [Concomitant]
     Active Substance: NITROUS OXIDE
     Indication: PRODUCT USED FOR UNKNOWN INDICATION
     Dosage: DOSAGE FORM: UNSPECIFIED
     Route: 065
  18. OXYGEN. [Concomitant]
     Active Substance: OXYGEN
     Dosage: DOSAGE FORM: UNSPECIFIED
     Route: 065
  19. INTELENCE [Suspect]
     Active Substance: ETRAVIRINE
     Route: 048
  20. ISENTRESS [Suspect]
     Active Substance: RALTEGRAVIR POTASSIUM
     Indication: HIV INFECTION
     Dosage: 400 MG, DOSAGE FORM: UNSPECIFIED, FOR 2 YEARS AND 4 MONTHS
     Route: 048
     Dates: start: 20081023, end: 20090221
  21. ISENTRESS [Suspect]
     Active Substance: RALTEGRAVIR POTASSIUM
     Dosage: DOSAGE FORM: UNSPECIFIED, FOR 2 YEARS AND 4 MONTHS
     Route: 048
  22. PREZISTA [Suspect]
     Active Substance: DARUNAVIR ETHANOLATE
     Indication: HIV INFECTION
     Dosage: 600 MG, BID
     Route: 048
     Dates: start: 20081023
  23. NOVORAPID [Concomitant]
     Active Substance: INSULIN ASPART
     Indication: GESTATIONAL DIABETES
     Dosage: DOSAGE FORM: UNSPECIFIED
     Route: 065
     Dates: end: 20091022
  24. ENFUVIRTIDE. [Concomitant]
     Active Substance: ENFUVIRTIDE
     Dosage: DOSAGE FORM: UNSPECIFIED
     Route: 065
  25. NITROUS OXIDE. [Concomitant]
     Active Substance: NITROUS OXIDE
     Dosage: DOSAGE FORM: UNSPECIFIED
     Route: 065
  26. ISENTRESS [Suspect]
     Active Substance: RALTEGRAVIR POTASSIUM
     Dosage: DOSAGE FORM: UNSPECIFIED
     Route: 048
     Dates: start: 20081023, end: 20090221
  27. PREDNISOLONE. [Concomitant]
     Active Substance: PREDNISOLONE
     Indication: PRODUCT USED FOR UNKNOWN INDICATION
     Dosage: 25 MG, UNK
     Route: 065
  28. INTELENCE [Suspect]
     Active Substance: ETRAVIRINE
     Dosage: 1000 MG, QD
     Route: 048
     Dates: start: 20081023
  29. NORVIR [Suspect]
     Active Substance: RITONAVIR
     Dosage: 200 MG, BID
     Route: 048
     Dates: start: 20060905, end: 20081022
  30. NORVIR [Suspect]
     Active Substance: RITONAVIR
     Dosage: 400 MG, BID
     Route: 048
  31. TRUVADA [Suspect]
     Active Substance: EMTRICITABINE\TENOFOVIR DISOPROXIL FUMARATE
     Indication: HIV INFECTION
     Dosage: DOSAGE FORM: UNSPECIFIED, 18 MONTHS
     Route: 048
     Dates: start: 20070905, end: 20081023

REACTIONS (6)
  - Lipodystrophy acquired [Recovered/Resolved]
  - Aspartate aminotransferase abnormal [Recovered/Resolved]
  - Drug-induced liver injury [Unknown]
  - Exposure during pregnancy [Recovered/Resolved]
  - Alanine aminotransferase abnormal [Recovered/Resolved]
  - Live birth [Unknown]
